FAERS Safety Report 6685377-9 (Version None)
Quarter: 2010Q2

REPORT INFORMATION
  Report Type: 
  Country: None (occurrence: None)
  Receive Date: 20100416
  Receipt Date: 20100114
  Transmission Date: 20101027
  Serious: Yes (Other)
  Sender: FDA-Public Use
  Company Number: US-AMGEN-QUU385869

PATIENT
  Age: 62 Year
  Sex: Female

DRUGS (6)
  1. SENSIPAR [Suspect]
     Indication: HYPERPARATHYROIDISM SECONDARY
  2. RENAGEL [Concomitant]
  3. NORVASC [Concomitant]
  4. METOPROLOL TARTRATE [Concomitant]
  5. FERROUS SULFATE TAB [Concomitant]
  6. ALLOPURINOL [Concomitant]

REACTIONS (1)
  - BLOOD CALCIUM DECREASED [None]
